FAERS Safety Report 5787879-6 (Version None)
Quarter: 2008Q2

REPORT INFORMATION
  Report Type: 
  Country: None (occurrence: None)
  Receive Date: 20080625
  Receipt Date: 20080613
  Transmission Date: 20081010
  Serious: Yes (Other)
  Sender: FDA-Public Use
  Company Number: JP-ROCHE-564920

PATIENT
  Sex: Female
  Weight: 58 kg

DRUGS (4)
  1. XELODA [Suspect]
     Indication: COLON CANCER
     Dosage: DRUG NAME: XELODA 300
     Route: 048
     Dates: start: 20080209, end: 20080101
  2. XELODA [Suspect]
     Dosage: DOSE DECREASED
     Route: 048
     Dates: start: 20080509
  3. LIVALO [Concomitant]
     Route: 048
     Dates: start: 20080214
  4. PYDOXAL [Concomitant]
     Route: 048

REACTIONS (4)
  - ABDOMINAL PAIN [None]
  - PALMAR-PLANTAR ERYTHRODYSAESTHESIA SYNDROME [None]
  - PHOTOPSIA [None]
  - RETINAL TEAR [None]
